FAERS Safety Report 4884635-8 (Version None)
Quarter: 2006Q1

REPORT INFORMATION
  Report Type: 
  Country: None (occurrence: None)
  Receive Date: 20060119
  Receipt Date: 20060109
  Transmission Date: 20060701
  Serious: Yes (Life-Threatening)
  Sender: FDA-Public Use
  Company Number: AU-ABBOTT-06P-008-0321759-00

PATIENT
  Sex: Female

DRUGS (7)
  1. REDUCTIL [Suspect]
     Indication: DRUG USE FOR UNKNOWN INDICATION
     Route: 048
     Dates: start: 20040812
  2. REDUCTIL [Suspect]
     Route: 048
     Dates: start: 20041103, end: 20041211
  3. SALBUTAMOL [Concomitant]
     Indication: DRUG USE FOR UNKNOWN INDICATION
     Route: 055
  4. BETAMETHASONE DIPROPIONATE [Concomitant]
     Indication: DRUG USE FOR UNKNOWN INDICATION
     Route: 061
     Dates: start: 20041209
  5. SERETIDE ACCUHALER NOS [Concomitant]
     Indication: DRUG USE FOR UNKNOWN INDICATION
     Route: 055
  6. EUGYNON [Concomitant]
     Indication: DRUG USE FOR UNKNOWN INDICATION
     Route: 048
     Dates: end: 20041211
  7. TYROXINE [Concomitant]
     Indication: HYPOTHYROIDISM
     Dates: start: 20041211

REACTIONS (9)
  - APNOEA [None]
  - CARDIAC ARREST [None]
  - COMA [None]
  - ELECTROMECHANICAL DISSOCIATION [None]
  - FEELING HOT [None]
  - MALAISE [None]
  - PALLOR [None]
  - PULSE ABSENT [None]
  - VENTRICULAR FIBRILLATION [None]
